FAERS Safety Report 8515336-2 (Version None)
Quarter: 2012Q3

REPORT INFORMATION
  Report Type: 
  Country: None (occurrence: None)
  Receive Date: 20120717
  Receipt Date: 20120705
  Transmission Date: 20120928
  Serious: No
  Sender: FDA-Public Use
  Company Number: US-ASTRAZENECA-2012SE45876

PATIENT
  Age: 63 Year
  Sex: Male
  Weight: 86.2 kg

DRUGS (6)
  1. CHOLESTEROL MEDICATION [Concomitant]
  2. NEXIUM [Suspect]
     Indication: GASTROOESOPHAGEAL REFLUX DISEASE
     Route: 048
  3. NEXIUM [Suspect]
     Indication: ULCER
     Route: 048
  4. OMEPRAZOLE [Suspect]
     Route: 048
  5. VITOREN [Concomitant]
  6. MAGNESIUM HYDROXIDE TAB [Concomitant]

REACTIONS (2)
  - DYSGEUSIA [None]
  - OFF LABEL USE [None]
